FAERS Safety Report 17517214 (Version 1)
Quarter: 2020Q1

REPORT INFORMATION
  Report Type: Report from Study
  Country: CA (occurrence: CA)
  Receive Date: 20200309
  Receipt Date: 20200309
  Transmission Date: 20200409
  Serious: Yes (Hospitalization)
  Sender: FDA-Public Use
  Company Number: CA-EISAI MEDICAL RESEARCH-EC-2020-071369

PATIENT
  Sex: Male

DRUGS (2)
  1. BANZEL [Suspect]
     Active Substance: RUFINAMIDE
     Route: 048
     Dates: start: 2020
  2. BANZEL [Suspect]
     Active Substance: RUFINAMIDE
     Indication: LENNOX-GASTAUT SYNDROME
     Dosage: FREQUENCY AND DOSE UNKNOWN
     Route: 048
     Dates: start: 20160102, end: 2020

REACTIONS (1)
  - Abdominal pain [Unknown]

NARRATIVE: CASE EVENT DATE: 2020
